FAERS Safety Report 10729484 (Version 1)
Quarter: 2015Q1

REPORT INFORMATION
  Report Type: Spontaneous
  Country: US (occurrence: US)
  Receive Date: 20150122
  Receipt Date: 20150122
  Transmission Date: 20150721
  Serious: No
  Sender: FDA-Public Use
  Company Number: US-BAYER-2015-009361

PATIENT
  Age: 75 Year
  Sex: Female
  Weight: 59.41 kg

DRUGS (1)
  1. ALEVE [Suspect]
     Active Substance: NAPROXEN SODIUM
     Indication: ARTHRITIS
     Dosage: 1 DF, PRN
     Route: 048
     Dates: start: 2010

REACTIONS (2)
  - Expired product administered [None]
  - Medication error [None]

NARRATIVE: CASE EVENT DATE: 201408
